FAERS Safety Report 10047104 (Version 2)
Quarter: 2014Q1

REPORT INFORMATION
  Report Type: Spontaneous
  Country: IL (occurrence: IL)
  Receive Date: 20140331
  Receipt Date: 20140331
  Transmission Date: 20141002
  Serious: Yes (Death, Hospitalization)
  Sender: FDA-Public Use
  Company Number: IL-CELGENEUS-082-21880-13074520

PATIENT
  Age: 65 Year
  Sex: Male

DRUGS (8)
  1. REVLIMID [Suspect]
     Indication: MANTLE CELL LYMPHOMA
     Dosage: FOR 21 DAYS
     Route: 048
     Dates: start: 201307, end: 20130718
  2. REVLIMID [Suspect]
     Dosage: 25 MILLIGRAM
     Route: 048
     Dates: start: 20130726, end: 20131205
  3. ZINACEF [Concomitant]
     Indication: PRODUCT USED FOR UNKNOWN INDICATION
     Dosage: 1500 MILLIGRAM
     Route: 065
     Dates: start: 20131121, end: 20131127
  4. TAZOCIN [Concomitant]
     Indication: PYREXIA
     Dosage: 13.5 MILLIGRAM
     Route: 065
     Dates: start: 20131127, end: 20131205
  5. TAZOCIN [Concomitant]
     Indication: NEUTROPENIA
  6. IMIPENEM [Concomitant]
     Indication: PYREXIA
     Dosage: 2000 MILLIGRAM
     Route: 065
     Dates: start: 20131205, end: 20131214
  7. IMIPENEM [Concomitant]
     Indication: NEUTROPENIA
  8. VANCOMYCIN [Concomitant]
     Indication: ENTEROCOCCUS TEST POSITIVE
     Dosage: 2 GRAM
     Route: 065
     Dates: start: 20131212, end: 20131214

REACTIONS (3)
  - Mantle cell lymphoma [Fatal]
  - Sepsis [Fatal]
  - Febrile neutropenia [Recovered/Resolved]
